FAERS Safety Report 8351412-5 (Version None)
Quarter: 2012Q2

REPORT INFORMATION
  Report Type: 
  Country: None (occurrence: None)
  Receive Date: 20120510
  Receipt Date: 20120504
  Transmission Date: 20120825
  Serious: Yes (Other)
  Sender: FDA-Public Use
  Company Number: US-B.I. PHARMACEUTICALS,INC./RIDGEFIELD-2012-BP-10322BP

PATIENT
  Sex: Male
  Weight: 76.2 kg

DRUGS (6)
  1. ZETIA [Concomitant]
     Indication: HYPERCHOLESTEROLAEMIA
     Dosage: 10 MG
     Route: 048
  2. CELEBREX [Concomitant]
     Indication: ARTHRITIS
     Dosage: 200 MG
     Route: 048
     Dates: start: 20070101
  3. PRAVASTATIN [Concomitant]
     Indication: HYPERCHOLESTEROLAEMIA
     Dosage: 40 MG
     Route: 048
  4. FLOMAX [Suspect]
     Indication: PROSTATOMEGALY
     Dosage: 0.4 MG
     Route: 048
     Dates: start: 20060101, end: 20120401
  5. RAPAFLO [Concomitant]
     Indication: PROSTATOMEGALY
     Dosage: 8 MG
     Route: 048
     Dates: start: 20070101
  6. XARELTO [Suspect]
     Indication: ATRIAL FIBRILLATION
     Dosage: 15 MG
     Route: 048
     Dates: start: 20120301

REACTIONS (4)
  - URINARY TRACT INFECTION [None]
  - DRUG INEFFECTIVE [None]
  - HEART RATE INCREASED [None]
  - BLOOD URINE PRESENT [None]
